FAERS Safety Report 5496099-4 (Version None)
Quarter: 2007Q4

REPORT INFORMATION
  Report Type: 
  Country: None (occurrence: None)
  Receive Date: 20071025
  Receipt Date: 20070409
  Transmission Date: 20080405
  Serious: No
  Sender: FDA-Public Use
  Company Number: A0636878A

PATIENT
  Age: 84 Year
  Sex: Female

DRUGS (7)
  1. ADVAIR DISKUS 100/50 [Suspect]
     Indication: CHRONIC OBSTRUCTIVE PULMONARY DISEASE
     Dosage: 1PUFF TWICE PER DAY
     Route: 055
     Dates: end: 20070122
  2. FELODIPINE [Concomitant]
  3. SYNTHROID [Concomitant]
  4. FOSAMAX [Concomitant]
  5. MELOXICAM [Concomitant]
  6. CALCIUM [Concomitant]
  7. ASPIRIN [Concomitant]

REACTIONS (3)
  - DYSPHONIA [None]
  - THERAPEUTIC RESPONSE DECREASED [None]
  - THROAT IRRITATION [None]
